FAERS Safety Report 5278338-8 (Version None)
Quarter: 2007Q1

REPORT INFORMATION
  Report Type: 
  Country: None (occurrence: None)
  Receive Date: 20070322
  Receipt Date: 20070309
  Transmission Date: 20070707
  Serious: Yes (Other)
  Sender: FDA-Public Use
  Company Number: 2007RR-06256

PATIENT
  Age: 47 Year
  Sex: Male

DRUGS (7)
  1. CLARITHROMYCIN [Suspect]
     Dosage: 500 MG, QD, ORAL
     Route: 048
     Dates: start: 20060924, end: 20061101
  2. LIPITOR [Suspect]
     Indication: HYPERCHOLESTEROLAEMIA
     Dosage: 40 MG, QD, ORAL
     Route: 048
  3. EZETIMIBE [Concomitant]
  4. FORMETEROL FUMARATE [Concomitant]
  5. LOSARTAN POTASSIUM (LOSARTAN) [Concomitant]
  6. OMEPRAZOLE [Concomitant]
  7. SYMBICORT [Concomitant]

REACTIONS (3)
  - BACK PAIN [None]
  - MYALGIA [None]
  - SKIN REACTION [None]
